FAERS Safety Report 4665182-5 (Version None)
Quarter: 2005Q2

REPORT INFORMATION
  Report Type: 
  Country: None (occurrence: None)
  Receive Date: 20050517
  Receipt Date: 20050503
  Transmission Date: 20051028
  Serious: No
  Sender: FDA-Public Use
  Company Number: B0377937A

PATIENT
  Age: 35 Year
  Sex: Male

DRUGS (3)
  1. PAXIL [Suspect]
     Indication: ANXIETY
  2. ETHANOL [Concomitant]
  3. QUETIAPINE FUMARATE [Concomitant]

REACTIONS (3)
  - ERECTILE DYSFUNCTION [None]
  - PRIAPISM [None]
  - THERAPEUTIC RESPONSE DECREASED [None]
